FAERS Safety Report 17900992 (Version 1)
Quarter: 2020Q2

REPORT INFORMATION
  Report Type: Spontaneous
  Country: US (occurrence: US)
  Receive Date: 20200616
  Receipt Date: 20200616
  Transmission Date: 20200714
  Serious: Yes (Other)
  Sender: FDA-Public Use
  Company Number: US-PFIZER INC-2020233125

PATIENT
  Age: 62 Year

DRUGS (1)
  1. DETROL LA [Suspect]
     Active Substance: TOLTERODINE TARTRATE
     Dosage: 4 MG, 1X/DAY (TAKE 1 CAPSULE EVERY DAY)

REACTIONS (4)
  - Movement disorder [Unknown]
  - Back pain [Unknown]
  - Sensory loss [Unknown]
  - Gait disturbance [Unknown]
